FAERS Safety Report 11891690 (Version 1)
Quarter: 2016Q1

REPORT INFORMATION
  Report Type: Spontaneous
  Country: DE (occurrence: DE)
  Receive Date: 20160106
  Receipt Date: 20160106
  Transmission Date: 20160526
  Serious: Yes (Hospitalization, Other)
  Sender: FDA-Public Use
  Company Number: DE-BAYER-2016-001843

PATIENT
  Sex: Male

DRUGS (2)
  1. NEXAVAR [Suspect]
     Active Substance: SORAFENIB
     Dosage: 400 MG, QD
     Dates: start: 20151112
  2. NEXAVAR [Suspect]
     Active Substance: SORAFENIB
     Dosage: 800 MG, UNK
     Dates: start: 201511, end: 20151127

REACTIONS (2)
  - Palmar-plantar erythrodysaesthesia syndrome [None]
  - Inguinal hernia [None]
